FAERS Safety Report 9213336 (Version 1)
Quarter: 2013Q2

REPORT INFORMATION
  Report Type: Spontaneous
  Country: US (occurrence: None)
  Receive Date: 20130404
  Receipt Date: 20130404
  Transmission Date: 20140414
  Serious: Yes (Hospitalization)
  Sender: FDA-Public Use
  Company Number: None

PATIENT
  Age: 29 Year
  Sex: Female
  Weight: 61.24 kg

DRUGS (1)
  1. NORETHINDRONE [Suspect]
     Indication: CONTRACEPTION
     Dosage: ONCE DAILY PO
     Route: 048
     Dates: start: 20130217, end: 20130226

REACTIONS (9)
  - Dizziness [None]
  - Thirst [None]
  - Micturition disorder [None]
  - Headache [None]
  - Myalgia [None]
  - Nausea [None]
  - Vertigo [None]
  - Diplopia [None]
  - Product contamination [None]
